FAERS Safety Report 5517489-7 (Version None)
Quarter: 2007Q4

REPORT INFORMATION
  Report Type: 
  Country: None (occurrence: None)
  Receive Date: 20071114
  Receipt Date: 20071112
  Transmission Date: 20080405
  Serious: Yes (Life-Threatening)
  Sender: FDA-Public Use
  Company Number: DE-JNJFOC-20071103454

PATIENT
  Age: 82 Year

DRUGS (14)
  1. HALDOL [Suspect]
     Route: 048
  2. HALDOL [Suspect]
     Indication: DRUG USE FOR UNKNOWN INDICATION
     Route: 048
  3. MIRTAZAPINE [Interacting]
     Route: 048
  4. MIRTAZAPINE [Interacting]
     Indication: DRUG USE FOR UNKNOWN INDICATION
     Route: 048
  5. ZYPREXA [Interacting]
     Indication: DRUG USE FOR UNKNOWN INDICATION
     Route: 048
  6. AXURA [Concomitant]
     Route: 048
  7. FERROUS SULFATE TAB [Concomitant]
     Route: 048
  8. GLUCOBAY [Concomitant]
     Route: 048
  9. DILZEM [Concomitant]
     Route: 048
  10. LACTULOSE [Concomitant]
     Route: 048
  11. ASPIRIN [Concomitant]
     Route: 048
  12. ZOPICLON [Concomitant]
     Route: 048
  13. ZOPICLON [Concomitant]
     Route: 048
  14. ZOPICLON [Concomitant]
     Route: 048

REACTIONS (2)
  - DRUG INTERACTION [None]
  - GENERAL PHYSICAL HEALTH DETERIORATION [None]
